FAERS Safety Report 4996576-6 (Version None)
Quarter: 2006Q2

REPORT INFORMATION
  Report Type: 
  Country: None (occurrence: None)
  Receive Date: 20060505
  Receipt Date: 20060426
  Transmission Date: 20061013
  Serious: Yes (Death)
  Sender: FDA-Public Use
  Company Number: S05-USA-05128-01

PATIENT
  Age: 33 Year
  Sex: Female
  Weight: 53.5244 kg

DRUGS (5)
  1. LEXAPRO [Suspect]
     Indication: DEPRESSION
     Dosage: 40 MG QD PO
     Route: 048
     Dates: end: 20051021
  2. LAMICTAL [Concomitant]
  3. TOPAMAX [Concomitant]
  4. KLONOPIN [Concomitant]
  5. VITAMIN K TAB [Concomitant]

REACTIONS (8)
  - BLOOD GLUCOSE DECREASED [None]
  - BLOOD POTASSIUM INCREASED [None]
  - BLOOD SODIUM INCREASED [None]
  - BLOOD UREA INCREASED [None]
  - CARBON DIOXIDE ABNORMAL [None]
  - COMPLETED SUICIDE [None]
  - DRUG LEVEL INCREASED [None]
  - OVARIAN CYST [None]
